FAERS Safety Report 14317955 (Version 1)
Quarter: 2017Q4

REPORT INFORMATION
  Report Type: Spontaneous
  Country: US (occurrence: US)
  Receive Date: 20171222
  Receipt Date: 20171222
  Transmission Date: 20180321
  Serious: No
  Sender: FDA-Public Use
  Company Number: PHEH2017US041151

PATIENT

DRUGS (1)
  1. ARRANON [Suspect]
     Active Substance: NELARABINE
     Indication: PRODUCT USED FOR UNKNOWN INDICATION
     Route: 041

REACTIONS (3)
  - Erythema [Unknown]
  - Swelling face [Unknown]
  - Infusion related reaction [Unknown]
